FAERS Safety Report 10195649 (Version 4)
Quarter: 2014Q3

REPORT INFORMATION
  Report Type: Report from Study
  Country: GB (occurrence: GB)
  Receive Date: 20140527
  Receipt Date: 20140820
  Transmission Date: 20150326
  Serious: Yes (Death, Hospitalization)
  Sender: FDA-Public Use
  Company Number: GB-ACCORD-023575

PATIENT
  Age: 58 Year
  Sex: Male

DRUGS (16)
  1. DOMPERIDONE [Concomitant]
     Active Substance: DOMPERIDONE
     Indication: PROPHYLAXIS OF NAUSEA AND VOMITING
     Route: 048
     Dates: start: 20130628
  2. AMITRIPTYLINE/AMITRIPTYLINE HYDROCHLORIDE/AMITRIPTYLINE PAMOATE/AMITRIPTYLINOXIDE [Concomitant]
     Indication: PAIN
     Route: 048
     Dates: start: 201303
  3. CIPROFLOXACIN. [Concomitant]
     Active Substance: CIPROFLOXACIN
     Indication: ANTIBIOTIC THERAPY
     Dosage: DAY 8 POST CHEMOTHERAPY
     Route: 048
     Dates: start: 20130705
  4. CISPLATIN. [Suspect]
     Active Substance: CISPLATIN
     Indication: BLADDER CANCER
     Route: 041
     Dates: start: 20130628, end: 20130830
  5. DEXAMETHASONE. [Concomitant]
     Active Substance: DEXAMETHASONE
     Indication: PROPHYLAXIS OF NAUSEA AND VOMITING
     Dosage: ONGOING
     Route: 048
     Dates: start: 20130728
  6. TAMSULOSIN/TAMSULOSIN HYDROCHLORIDE [Concomitant]
     Active Substance: TAMSULOSIN HYDROCHLORIDE
     Indication: URINARY RETENTION
     Route: 048
     Dates: start: 201303
  7. MST CONTINUS [Concomitant]
     Active Substance: MORPHINE SULFATE
     Indication: PAIN
     Dosage: UNKNOWN
     Route: 048
     Dates: start: 201303
  8. GABAPENTIN. [Concomitant]
     Active Substance: GABAPENTIN
     Indication: PAIN
     Route: 048
     Dates: start: 20130606, end: 20130726
  9. MOVICOL [Concomitant]
     Active Substance: POLYETHYLENE GLYCOL 3350\POTASSIUM CHLORIDE\SODIUM BICARBONATE\SODIUM CHLORIDE
     Indication: CONSTIPATION PROPHYLAXIS
     Dosage: UNKNOWN
     Route: 048
     Dates: start: 201303
  10. GEMCITABINE/GEMCITABINE HYDROCHLORIDE [Suspect]
     Active Substance: GEMCITABINE\GEMCITABINE HYDROCHLORIDE
     Indication: BLADDER CANCER
     Route: 041
     Dates: start: 20130628, end: 20130830
  11. APREPITANT [Concomitant]
     Active Substance: APREPITANT
     Indication: PROPHYLAXIS OF NAUSEA AND VOMITING
     Dosage: PRE AND POST CHEMOTHERAPY
     Route: 048
     Dates: start: 20130628
  12. PARACETAMOL [Concomitant]
     Active Substance: ACETAMINOPHEN
     Indication: PAIN
     Dosage: UNKNOWN
     Route: 048
     Dates: start: 201303
  13. ONDANSETRON [Concomitant]
     Active Substance: ONDANSETRON
     Indication: PROPHYLAXIS OF NAUSEA AND VOMITING
     Dosage: PRE CHEMOTHERAPY
     Route: 048
     Dates: start: 20130728
  14. SENNA [Concomitant]
     Active Substance: SENNA LEAF\SENNOSIDES\SENNOSIDES A AND B
     Indication: CONSTIPATION PROPHYLAXIS
     Dosage: UNKNOWN
     Route: 048
     Dates: start: 201303
  15. ORAMORPH SR SUSTAINED RELEASE [Concomitant]
     Active Substance: MORPHINE SULFATE
     Indication: PAIN
     Dosage: UNKNOWN
     Route: 048
     Dates: start: 201306
  16. ENOXAPARIN [Concomitant]
     Active Substance: ENOXAPARIN
     Indication: PRODUCT USED FOR UNKNOWN INDICATION

REACTIONS (3)
  - Malaise [Recovered/Resolved]
  - Anaemia [Recovered/Resolved]
  - Dizziness [Recovered/Resolved]

NARRATIVE: CASE EVENT DATE: 20130711
